FAERS Safety Report 8332315-9 (Version None)
Quarter: 2012Q2

REPORT INFORMATION
  Report Type: 
  Country: None (occurrence: None)
  Receive Date: 20120503
  Receipt Date: 20120423
  Transmission Date: 20120825
  Serious: No
  Sender: FDA-Public Use
  Company Number: US-BIOGENIDEC-2012BI014979

PATIENT
  Sex: Female

DRUGS (7)
  1. AVONEX [Suspect]
     Indication: MULTIPLE SCLEROSIS
     Route: 030
     Dates: start: 20000101, end: 20040730
  2. PREMARIN [Concomitant]
     Indication: NIGHT SWEATS
  3. AVONEX [Suspect]
     Route: 030
     Dates: start: 20070612, end: 20080905
  4. PREMARIN [Concomitant]
     Indication: WEIGHT INCREASED
  5. AVONEX [Suspect]
     Route: 030
     Dates: start: 20100228, end: 20100726
  6. PREMARIN [Concomitant]
     Indication: HOT FLUSH
  7. PREMARIN [Concomitant]
     Indication: MOOD SWINGS

REACTIONS (3)
  - FALL [None]
  - CONTUSION [None]
  - WEIGHT INCREASED [None]
